FAERS Safety Report 7850659-1 (Version None)
Quarter: 2011Q4

REPORT INFORMATION
  Report Type: 
  Country: None (occurrence: None)
  Receive Date: 20111021
  Receipt Date: 20111011
  Transmission Date: 20120403
  Serious: Yes (Hospitalization)
  Sender: FDA-Public Use
  Company Number: 1062122

PATIENT
  Age: 66 Year
  Sex: Male

DRUGS (1)
  1. METHOTREXATE [Suspect]
     Indication: PSORIATIC ARTHROPATHY
     Dosage: 15 MG DAILY,   ,

REACTIONS (4)
  - STREPTOCOCCUS TEST POSITIVE [None]
  - PHARYNGEAL ABSCESS [None]
  - INFECTION IN AN IMMUNOCOMPROMISED HOST [None]
  - BACTERIAL TEST POSITIVE [None]
